FAERS Safety Report 8434845 (Version 4)
Quarter: 2013Q1

REPORT INFORMATION
  Report Type: Spontaneous
  Country: US (occurrence: US)
  Receive Date: 20120301
  Receipt Date: 20130214
  Transmission Date: 20140127
  Serious: Yes (Other)
  Sender: FDA-Public Use
  Company Number: US-JNJFOC-20120211053

PATIENT
  Age: 49 None
  Sex: Male
  Weight: 113.4 kg

DRUGS (1)
  1. REMICADE [Suspect]
     Indication: COLITIS ULCERATIVE
     Route: 042
     Dates: start: 2005

REACTIONS (7)
  - Respiratory tract infection [Recovering/Resolving]
  - Limb injury [Recovered/Resolved]
  - Local swelling [Recovering/Resolving]
  - Foot fracture [Recovering/Resolving]
  - Fall [Recovered/Resolved]
  - Pain [Recovering/Resolving]
  - Malaise [Recovering/Resolving]
